FAERS Safety Report 25490034 (Version 1)
Quarter: 2025Q2

REPORT INFORMATION
  Report Type: Spontaneous
  Country: US (occurrence: US)
  Receive Date: 20250628
  Receipt Date: 20250628
  Transmission Date: 20250717
  Serious: No
  Sender: SANOFI AVENTIS
  Company Number: US-SA-2025SA181739

PATIENT
  Sex: Female
  Weight: 131.5 kg

DRUGS (3)
  1. DUPIXENT [Suspect]
     Active Substance: DUPILUMAB
     Indication: Dermatitis atopic
     Dosage: 300 MG, QOW
     Route: 058
  2. ADBRY [Concomitant]
     Active Substance: TRALOKINUMAB-LDRM
  3. RINVOQ [Concomitant]
     Active Substance: UPADACITINIB

REACTIONS (5)
  - Pruritus [Unknown]
  - Therapeutic response decreased [Unknown]
  - Dry skin [Unknown]
  - Skin fissures [Unknown]
  - Skin exfoliation [Unknown]
